FAERS Safety Report 9462862 (Version 1)
Quarter: 2013Q3

REPORT INFORMATION
  Report Type: Report from Study
  Country: DE (occurrence: DE)
  Receive Date: 20130816
  Receipt Date: 20130816
  Transmission Date: 20140515
  Serious: Yes (Hospitalization)
  Sender: FDA-Public Use
  Company Number: DE-ABBOTT-13P-062-1130667-00

PATIENT
  Sex: Female

DRUGS (2)
  1. HUMIRA [Suspect]
     Indication: CROHN^S DISEASE
     Route: 058
     Dates: start: 20120101, end: 20130702
  2. HUMIRA [Suspect]
     Dates: start: 20130802

REACTIONS (2)
  - Gastrointestinal disorder [Not Recovered/Not Resolved]
  - Hypersensitivity [Unknown]
